FAERS Safety Report 19459201 (Version 3)
Quarter: 2023Q2

REPORT INFORMATION
  Report Type: Report from Study
  Country: BR (occurrence: BR)
  Receive Date: 20210624
  Receipt Date: 20230426
  Transmission Date: 20230722
  Serious: Yes (Hospitalization, Other)
  Sender: FDA-Public Use
  Company Number: BR-TAKEDA-2021TUS037899

PATIENT
  Age: 45 Year
  Sex: Male
  Weight: 82 kg

DRUGS (23)
  1. HEMO-8R [Suspect]
     Active Substance: ANTIHEMOPHILIC FACTOR, HUMAN RECOMBINANT
     Indication: Prophylaxis
     Dosage: UNK
     Route: 042
     Dates: start: 20160328
  2. HEMO-8R [Suspect]
     Active Substance: ANTIHEMOPHILIC FACTOR, HUMAN RECOMBINANT
     Indication: Factor VIII deficiency
     Dosage: UNK
     Route: 042
     Dates: start: 20210611
  3. HEMO-8R [Suspect]
     Active Substance: ANTIHEMOPHILIC FACTOR, HUMAN RECOMBINANT
     Dosage: 4000 INTERNATIONAL UNIT
     Route: 042
     Dates: start: 20210612, end: 20210617
  4. HEMO-8R [Suspect]
     Active Substance: ANTIHEMOPHILIC FACTOR, HUMAN RECOMBINANT
     Dosage: 2000 INTERNATIONAL UNIT
     Route: 042
     Dates: start: 20210612, end: 20210617
  5. HEMO-8R [Suspect]
     Active Substance: ANTIHEMOPHILIC FACTOR, HUMAN RECOMBINANT
     Dosage: 1500 INTERNATIONAL UNIT
     Route: 042
     Dates: start: 20210612, end: 20210617
  6. HEMO-8R [Suspect]
     Active Substance: ANTIHEMOPHILIC FACTOR, HUMAN RECOMBINANT
     Dosage: 2000 INTERNATIONAL UNIT
     Route: 042
     Dates: start: 20210612, end: 20210617
  7. DIPROSPAN [Concomitant]
     Active Substance: BETAMETHASONE DIPROPIONATE\BETAMETHASONE SODIUM PHOSPHATE
     Indication: Pain
     Dosage: 7 MILLIGRAM, QD
     Route: 065
     Dates: start: 20161024, end: 20161026
  8. DIPROSPAN [Concomitant]
     Active Substance: BETAMETHASONE DIPROPIONATE\BETAMETHASONE SODIUM PHOSPHATE
     Indication: Joint effusion
  9. IBUPROFEN [Concomitant]
     Active Substance: IBUPROFEN
     Indication: Headache
     Dosage: 600 MILLIGRAM AS NEEDED
     Route: 065
     Dates: start: 20160406, end: 20160406
  10. IBUPROFEN [Concomitant]
     Active Substance: IBUPROFEN
     Indication: Vomiting
  11. IBUPROFEN [Concomitant]
     Active Substance: IBUPROFEN
     Indication: Arthralgia
     Dosage: 600 MILLIGRAM, QD
     Route: 065
     Dates: start: 20160705, end: 20160705
  12. IBUPROFEN [Concomitant]
     Active Substance: IBUPROFEN
     Indication: Pain
     Dosage: 600 MILLIGRAM, QD
     Route: 065
     Dates: start: 20160902, end: 20160905
  13. MELOXICAM [Concomitant]
     Active Substance: MELOXICAM
     Indication: Arthralgia
     Dosage: 15 MILLIGRAM, QD
     Route: 065
     Dates: start: 20160727, end: 20160728
  14. NIMESULIDE [Concomitant]
     Active Substance: NIMESULIDE
     Indication: Arthralgia
     Dosage: 100 MILLIGRAM, QD
     Route: 065
     Dates: start: 20170226, end: 20170227
  15. NIMESULIDE [Concomitant]
     Active Substance: NIMESULIDE
     Indication: Contusion
     Dosage: 100 MILLIGRAM, QD
     Route: 065
     Dates: start: 20160721, end: 20160721
  16. NIMESULIDE [Concomitant]
     Active Substance: NIMESULIDE
     Dosage: 100 MILLIGRAM, QD
     Route: 065
     Dates: start: 20160623, end: 20160623
  17. NIMESULIDE [Concomitant]
     Active Substance: NIMESULIDE
     Dosage: 100 MILLIGRAM, QD
     Route: 065
     Dates: start: 20160810, end: 20160816
  18. NIMESULIDE [Concomitant]
     Active Substance: NIMESULIDE
     Dosage: 100 MILLIGRAM, QD
     Route: 065
     Dates: start: 20161101, end: 20161102
  19. ACETAMINOPHEN [Concomitant]
     Active Substance: ACETAMINOPHEN
     Indication: Contusion
     Dosage: 750 MILLIGRAM, QD
     Route: 065
     Dates: start: 20161107, end: 20161108
  20. ACETAMINOPHEN [Concomitant]
     Active Substance: ACETAMINOPHEN
     Indication: Pain
     Dosage: 750 MILLIGRAM, QD
     Route: 065
     Dates: start: 20160920, end: 20160921
  21. ACETAMINOPHEN [Concomitant]
     Active Substance: ACETAMINOPHEN
     Indication: Joint effusion
     Dosage: 750 MILLIGRAM, QD
     Route: 065
     Dates: start: 20160826, end: 20160826
  22. ACETAMINOPHEN [Concomitant]
     Active Substance: ACETAMINOPHEN
     Indication: Arthralgia
     Dosage: 750 MILLIGRAM, QD
     Route: 065
     Dates: start: 20161024, end: 20161026
  23. NUMESULIDA [Concomitant]
     Indication: Contusion
     Dosage: 100 MILLIGRAM, QD
     Route: 065
     Dates: start: 20161101, end: 20161102

REACTIONS (1)
  - Ankle arthroplasty [Recovered/Resolved]

NARRATIVE: CASE EVENT DATE: 20210612
